FAERS Safety Report 20713348 (Version 3)
Quarter: 2022Q4

REPORT INFORMATION
  Report Type: Other
  Country: DE (occurrence: None)
  Receive Date: 20220415
  Receipt Date: 20221104
  Transmission Date: 20230112
  Serious: Yes (Hospitalization)
  Sender: FDA-Public Use
  Company Number: DE-ROCHE-2906274

PATIENT
  Age: 52 Year
  Sex: Male

DRUGS (3)
  1. OCREVUS [Suspect]
     Active Substance: OCRELIZUMAB
     Indication: Primary progressive multiple sclerosis
     Dosage: 1ST INITIAL DOSE
     Route: 042
     Dates: start: 20201215
  2. OCREVUS [Suspect]
     Active Substance: OCRELIZUMAB
     Dosage: 2ND INITIAL DOSE
     Route: 042
     Dates: start: 202101
  3. OCREVUS [Suspect]
     Active Substance: OCRELIZUMAB
     Dosage: 1ST MAINTENANCE DOSE
     Route: 042
     Dates: start: 202107

REACTIONS (6)
  - Dizziness [Recovered/Resolved]
  - Vomiting [Recovered/Resolved]
  - Visual impairment [Not Recovered/Not Resolved]
  - Gastrointestinal infection [Unknown]
  - Fatigue [Not Recovered/Not Resolved]
  - Gait disturbance [Not Recovered/Not Resolved]

NARRATIVE: CASE EVENT DATE: 20210901
